FAERS Safety Report 24674465 (Version 1)
Quarter: 2024Q4

REPORT INFORMATION
  Report Type: Spontaneous
  Country: JP (occurrence: JP)
  Receive Date: 20241128
  Receipt Date: 20241128
  Transmission Date: 20250114
  Serious: Yes (Other)
  Sender: ROCHE
  Company Number: JP-CHUGAI-2024036282AA

PATIENT
  Age: 6 Decade
  Sex: Female
  Weight: 66.5 kg

DRUGS (8)
  1. PHESGO [Suspect]
     Active Substance: HYALURONIDASE-ZZXF\PERTUZUMAB\TRASTUZUMAB
     Indication: Breast cancer
     Dosage: UNK, ONCE/3WEEKS, 8 TIMES
     Route: 050
     Dates: start: 20240411, end: 20240917
  2. PERJETA [Suspect]
     Active Substance: PERTUZUMAB
     Indication: Breast cancer
     Dosage: 840 MILLIGRAM, ONCE/3WEEKS
     Route: 042
     Dates: start: 20231017
  3. PERJETA [Suspect]
     Active Substance: PERTUZUMAB
     Dosage: 420 MILLIGRAM, ONCE/3WEEKS
     Route: 042
     Dates: start: 2023, end: 20231218
  4. HERCEPTIN [Suspect]
     Active Substance: TRASTUZUMAB
     Indication: Breast cancer
     Dosage: 560 MILLIGRAM, ONCE/3WEEKS
     Route: 042
     Dates: start: 20231017
  5. HERCEPTIN [Suspect]
     Active Substance: TRASTUZUMAB
     Dosage: 430 MILLIGRAM, ONCE/3WEEKS
     Route: 042
     Dates: start: 2023, end: 20231218
  6. DOCETAXEL [Suspect]
     Active Substance: DOCETAXEL
     Indication: Breast cancer
     Dosage: 125 MILLIGRAM, ONCE/3WEEKS
     Route: 042
     Dates: start: 20231017, end: 20231218
  7. DOXORUBICIN HYDROCHLORIDE [Suspect]
     Active Substance: DOXORUBICIN HYDROCHLORIDE
     Indication: Breast cancer
     Dosage: 100 MILLIGRAM, ONCE/2WEEKS
     Route: 042
     Dates: start: 20230822, end: 20231003
  8. CYCLOPHOSPHAMIDE [Suspect]
     Active Substance: CYCLOPHOSPHAMIDE
     Indication: Breast cancer
     Dosage: 1000 MILLIGRAM, ONCE/2WEEKS
     Route: 042
     Dates: start: 20230822, end: 20231003

REACTIONS (1)
  - Cardiac failure [Unknown]

NARRATIVE: CASE EVENT DATE: 20241004
